FAERS Safety Report 5997375-9 (Version None)
Quarter: 2008Q4

REPORT INFORMATION
  Report Type: 
  Country: None (occurrence: None)
  Receive Date: 20081212
  Receipt Date: 20081112
  Transmission Date: 20090506
  Serious: No
  Sender: FDA-Public Use
  Company Number: US-ABBOTT-08P-163-0487105-00

PATIENT
  Sex: Female

DRUGS (6)
  1. HUMIRA [Suspect]
     Indication: RHEUMATOID ARTHRITIS
     Route: 058
     Dates: start: 20050101, end: 20080801
  2. HUMIRA [Suspect]
     Indication: FIBROMYALGIA
     Route: 058
     Dates: start: 20050101, end: 20080801
  3. HUMIRA [Suspect]
     Route: 058
     Dates: start: 20080801
  4. PREMARIN [Concomitant]
     Indication: DRUG USE FOR UNKNOWN INDICATION
  5. THYROID PILL [Concomitant]
     Indication: DRUG USE FOR UNKNOWN INDICATION
  6. OTHER MEDICATIONS, NAMES UKNOWN [Concomitant]
     Indication: DRUG USE FOR UNKNOWN INDICATION

REACTIONS (1)
  - DRUG INEFFECTIVE [None]
